FAERS Safety Report 5621643-3 (Version None)
Quarter: 2008Q1

REPORT INFORMATION
  Report Type: 
  Country: None (occurrence: None)
  Receive Date: 20080211
  Receipt Date: 20080128
  Transmission Date: 20080703
  Serious: Yes (Hospitalization, Other)
  Sender: FDA-Public Use
  Company Number: US-AMGEN-KDL259309

PATIENT
  Sex: Female

DRUGS (23)
  1. ENBREL [Suspect]
     Indication: PSORIATIC ARTHROPATHY
     Route: 058
     Dates: start: 20000701
  2. ENBREL [Suspect]
     Indication: PSORIASIS
  3. LOPRESSOR [Concomitant]
  4. MAXZIDE [Concomitant]
  5. CLARINEX [Concomitant]
  6. PROTONIX [Concomitant]
  7. ZOCOR [Concomitant]
  8. CALCIUM WITH VITAMIN D [Concomitant]
  9. ADVAIR DISKUS 100/50 [Concomitant]
     Route: 055
  10. SYNTHROID [Concomitant]
  11. PREDNISONE TAB [Concomitant]
  12. ASPIRIN [Concomitant]
  13. LASIX [Concomitant]
  14. FIORINAL [Concomitant]
  15. FOSAMAX [Concomitant]
  16. VESICARE [Concomitant]
  17. HYOSCYAMINE SULFATE [Concomitant]
  18. CENTRUM SILVER [Concomitant]
  19. AVAPRO [Concomitant]
  20. DARVOCET-N 100 [Concomitant]
  21. REQUIP [Concomitant]
  22. KLOR-CON [Concomitant]
  23. VITAMIN B [Concomitant]

REACTIONS (11)
  - ABORTION SPONTANEOUS [None]
  - BIOPSY COLON [None]
  - CATARACT [None]
  - FOOT OPERATION [None]
  - KNEE ARTHROPLASTY [None]
  - LIVER DISORDER [None]
  - NEOPLASM SKIN [None]
  - RETINAL DETACHMENT [None]
  - SCAR [None]
  - SPINAL NERVE STIMULATOR IMPLANTATION [None]
  - UTERINE DISORDER [None]
